FAERS Safety Report 16198500 (Version 1)
Quarter: 2019Q2

REPORT INFORMATION
  Report Type: Spontaneous
  Country: NL (occurrence: NL)
  Receive Date: 20190415
  Receipt Date: 20190415
  Transmission Date: 20190711
  Serious: Yes (Other)
  Sender: FDA-Public Use
  Company Number: NL-PFIZER INC-2019154829

PATIENT
  Sex: Male
  Weight: 89 kg

DRUGS (1)
  1. CLINDAMYCIN HCL [Suspect]
     Active Substance: CLINDAMYCIN HYDROCHLORIDE
     Indication: ORTHODONTIC PROCEDURE
     Dosage: 300 MG, UNK (4D 300MG)
     Dates: start: 20190220, end: 20190225

REACTIONS (3)
  - Polyarthritis [Recovering/Resolving]
  - Hepatitis [Recovering/Resolving]
  - Pseudomembranous colitis [Recovering/Resolving]
